FAERS Safety Report 20742882 (Version 3)
Quarter: 2022Q3

REPORT INFORMATION
  Report Type: Report from Study
  Country: US (occurrence: US)
  Receive Date: 20220424
  Receipt Date: 20220919
  Transmission Date: 20221027
  Serious: Yes (Hospitalization, Other)
  Sender: FDA-Public Use
  Company Number: US-BRISTOL-MYERS SQUIBB COMPANY-2022-020830

PATIENT
  Age: 68 Year
  Sex: Male
  Weight: 128.3 kg

DRUGS (3)
  1. REVLIMID [Suspect]
     Active Substance: LENALIDOMIDE
     Indication: Product used for unknown indication
     Route: 048
     Dates: start: 201905
  2. REVLIMID [Suspect]
     Active Substance: LENALIDOMIDE
     Dosage: DAILY FOR 21 7 DAYS OFF
     Route: 048
     Dates: start: 201903
  3. REVLIMID [Suspect]
     Active Substance: LENALIDOMIDE
     Route: 065

REACTIONS (18)
  - Blood pressure increased [Unknown]
  - Chest pain [Unknown]
  - Hyperhidrosis [Unknown]
  - Gynaecomastia [Unknown]
  - Gastrointestinal disorder [Unknown]
  - Product distribution issue [Unknown]
  - Product prescribing issue [Unknown]
  - Asthenia [Unknown]
  - Bone pain [Unknown]
  - Arthralgia [Unknown]
  - Diarrhoea [Unknown]
  - Insomnia [Unknown]
  - Dizziness [Unknown]
  - Dehydration [Unknown]
  - Loss of consciousness [Unknown]
  - Glycosylated haemoglobin increased [Unknown]
  - Cardiomegaly [Unknown]
  - Bundle branch block left [Unknown]
